FAERS Safety Report 17342110 (Version 2)
Quarter: 2020Q3

REPORT INFORMATION
  Report Type: Spontaneous
  Country: JP (occurrence: JP)
  Receive Date: 20200129
  Receipt Date: 20200910
  Transmission Date: 20201102
  Serious: Yes (Other)
  Sender: FDA-Public Use
  Company Number: JP-SA-2020SA021011

PATIENT

DRUGS (2)
  1. DUPIXENT [Suspect]
     Active Substance: DUPILUMAB
     Indication: ASTHMA
  2. DUPIXENT [Suspect]
     Active Substance: DUPILUMAB
     Indication: DERMATITIS ATOPIC
     Dosage: UNK, QOW
     Route: 058
     Dates: start: 201909

REACTIONS (17)
  - Vision blurred [Unknown]
  - Pruritus [Unknown]
  - Condition aggravated [Unknown]
  - Eye pain [Unknown]
  - Eye pruritus [Unknown]
  - Cataract [Unknown]
  - Malignant melanoma [Unknown]
  - Genital herpes simplex [Recovered/Resolved]
  - Dermatitis atopic [Unknown]
  - Lymphadenopathy [Unknown]
  - Rash erythematous [Unknown]
  - Eye swelling [Recovered/Resolved]
  - Eye pain [Recovering/Resolving]
  - Spinal stenosis [Unknown]
  - Lumbar hernia [Unknown]
  - Conjunctivitis allergic [Unknown]
  - Ocular hyperaemia [Recovered/Resolved]

NARRATIVE: CASE EVENT DATE: 2020
